FAERS Safety Report 8264427-2 (Version None)
Quarter: 2012Q2

REPORT INFORMATION
  Report Type: 
  Country: None (occurrence: None)
  Receive Date: 20120406
  Receipt Date: 20120402
  Transmission Date: 20120825
  Serious: No
  Sender: FDA-Public Use
  Company Number: US-PFIZER INC-2012061360

PATIENT
  Sex: Female
  Weight: 104 kg

DRUGS (4)
  1. CHANTIX [Suspect]
     Dosage: UNK
     Route: 048
     Dates: start: 20120316
  2. CHANTIX [Suspect]
     Dosage: 1 MG, 2X/DAY
     Route: 048
     Dates: start: 20120301, end: 20120315
  3. CHANTIX [Suspect]
     Indication: SMOKING CESSATION THERAPY
     Dosage: 0.5 MG, 1X/DAY
     Route: 048
     Dates: start: 20120304, end: 20120301
  4. IBUPROFEN [Concomitant]
     Dosage: 800 MG, 3X/DAY

REACTIONS (4)
  - FEAR [None]
  - NERVOUSNESS [None]
  - SWELLING [None]
  - FRUSTRATION [None]
